FAERS Safety Report 6735005-9 (Version None)
Quarter: 2010Q2

REPORT INFORMATION
  Report Type: 
  Country: None (occurrence: None)
  Receive Date: 20100520
  Receipt Date: 20100520
  Transmission Date: 20101027
  Serious: Yes (Death, Life-Threatening, Hospitalization, Disabling, Other)
  Sender: FDA-Public Use
  Company Number: None

PATIENT
  Sex: Male
  Weight: 45.3597 kg

DRUGS (1)
  1. NOREPINEPHRINE 4 MG/250 ML HOSPIRA? [Suspect]
     Indication: SEPTIC SHOCK
     Dosage: RECEIVED .1 TO .3 MG/KG/HR CONTINUOUS DRIP IV DRIP
     Route: 041
     Dates: start: 20090901, end: 20090902

REACTIONS (10)
  - ARRHYTHMIA [None]
  - CARDIO-RESPIRATORY ARREST [None]
  - CEREBRAL HAEMORRHAGE [None]
  - CONVULSION [None]
  - EXTREMITY NECROSIS [None]
  - INCORRECT DOSE ADMINISTERED [None]
  - LIVER INJURY [None]
  - MEDICATION ERROR [None]
  - OVERDOSE [None]
  - RENAL DISORDER [None]
